FAERS Safety Report 5706054-4 (Version None)
Quarter: 2008Q2

REPORT INFORMATION
  Report Type: 
  Country: None (occurrence: None)
  Receive Date: 20080415
  Receipt Date: 20080408
  Transmission Date: 20081010
  Serious: Yes (Other)
  Sender: FDA-Public Use
  Company Number: RO-PFIZER INC-2008008381

PATIENT
  Sex: Female

DRUGS (4)
  1. SORTIS [Suspect]
     Indication: DYSLIPIDAEMIA
     Route: 048
     Dates: start: 20010101, end: 20060101
  2. SOTALOL HCL [Suspect]
     Indication: ANGINA PECTORIS
     Dates: start: 20010101, end: 20070101
  3. UTEPLEX [Concomitant]
  4. RILUTEK [Concomitant]

REACTIONS (2)
  - AMYOTROPHIC LATERAL SCLEROSIS [None]
  - BLOOD CHOLESTEROL [None]
